FAERS Safety Report 23989294 (Version 1)
Quarter: 2024Q2

REPORT INFORMATION
  Report Type: Report from Study
  Country: CA (occurrence: CA)
  Receive Date: 20240619
  Receipt Date: 20240619
  Transmission Date: 20240716
  Serious: Yes (Other)
  Sender: FDA-Public Use
  Company Number: CA-TAKEDA-2022TUS058657

PATIENT
  Age: 79 Year
  Sex: Male

DRUGS (4)
  1. IXAZOMIB [Suspect]
     Active Substance: IXAZOMIB
     Indication: Plasma cell myeloma
     Dosage: 4 MILLIGRAM
     Route: 048
     Dates: start: 20220701, end: 20220823
  2. IXAZOMIB [Suspect]
     Active Substance: IXAZOMIB
     Dosage: 2.3 MILLIGRAM
     Route: 048
     Dates: start: 20221007
  3. IXAZOMIB [Suspect]
     Active Substance: IXAZOMIB
     Dosage: 3 MILLIGRAM, 1/WEEK
     Route: 048
     Dates: start: 20221202
  4. IXAZOMIB [Suspect]
     Active Substance: IXAZOMIB
     Dosage: 3 MILLIGRAM
     Route: 048
     Dates: start: 20230712

REACTIONS (7)
  - Vertigo [Recovered/Resolved]
  - Neuropathy peripheral [Recovered/Resolved]
  - Abdominal discomfort [Recovered/Resolved]
  - Arthralgia [Unknown]
  - Product dose omission issue [Unknown]
  - Product dispensing error [Recovered/Resolved]
  - Off label use [Unknown]

NARRATIVE: CASE EVENT DATE: 20220802
